FAERS Safety Report 12570306 (Version 3)
Quarter: 2016Q3

REPORT INFORMATION
  Report Type: Spontaneous
  Country: US (occurrence: US)
  Receive Date: 20160719
  Receipt Date: 20160914
  Transmission Date: 20161109
  Serious: No
  Sender: FDA-Public Use
  Company Number: US-LPDUSPRD-20160052

PATIENT
  Age: 27 Year
  Sex: Female

DRUGS (2)
  1. DEXAMETHASONE SODIUM PHOSPHATE INJECTION, USP (4901-25) [Suspect]
     Active Substance: DEXAMETHASONE SODIUM PHOSPHATE
     Dosage: DOSE NOT STATED
     Route: 065
  2. NITROGLYCERIN INJECTION, USP (4810-10) [Suspect]
     Active Substance: NITROGLYCERIN
     Dosage: DOSE NOT STATED
     Route: 022

REACTIONS (1)
  - Exposure during pregnancy [Unknown]
